FAERS Safety Report 25745360 (Version 1)
Quarter: 2025Q3

REPORT INFORMATION
  Report Type: Spontaneous
  Country: US (occurrence: US)
  Receive Date: 20250901
  Receipt Date: 20250901
  Transmission Date: 20251020
  Serious: Yes (Life-Threatening, Hospitalization)
  Sender: EPIC PHARM
  Company Number: US-EPICPHARMA-US-2025EPCLIT01001

PATIENT
  Age: 19 Year
  Sex: Female

DRUGS (3)
  1. HYDROXYZINE HYDROCHLORIDE [Suspect]
     Active Substance: HYDROXYZINE HYDROCHLORIDE
     Indication: Product used for unknown indication
     Route: 048
  2. AMLODIPINE [Suspect]
     Active Substance: AMLODIPINE BESYLATE
     Indication: Product used for unknown indication
     Route: 048
  3. SOLIFENACIN [Suspect]
     Active Substance: SOLIFENACIN
     Indication: Product used for unknown indication
     Route: 048

REACTIONS (9)
  - Hypotension [Recovering/Resolving]
  - Oliguria [Unknown]
  - Cardiac disorder [Unknown]
  - Blood lactic acid [Unknown]
  - Condition aggravated [Unknown]
  - Toxicity to various agents [Unknown]
  - Hyperglycaemia [Unknown]
  - Somnolence [Unknown]
  - Intentional overdose [Unknown]
